FAERS Safety Report 5203594-1 (Version None)
Quarter: 2007Q1

REPORT INFORMATION
  Report Type: 
  Country: None (occurrence: None)
  Receive Date: 20070105
  Receipt Date: 20061220
  Transmission Date: 20070707
  Serious: Yes (Hospitalization)
  Sender: FDA-Public Use
  Company Number: 231863

PATIENT
  Age: 51 Year
  Sex: Male

DRUGS (4)
  1. RSHAPO2L-TRAIL (RSHAPO2L-TRAIL) POWDER FOR INJECTION, 21.5 MG/ML [Suspect]
     Indication: NON-SMALL CELL LUNG CANCER
  2. AVASTIN [Suspect]
     Indication: NON-SMALL CELL LUNG CANCER
     Dosage: 645 MG, INTRAVENOUS
     Route: 042
     Dates: start: 20060801, end: 20061009
  3. PACLITAXEL [Concomitant]
  4. CARBOPLATIN [Concomitant]

REACTIONS (5)
  - ANAEMIA [None]
  - ASTHENIA [None]
  - BRONCHIAL OBSTRUCTION [None]
  - DYSPNOEA [None]
  - PLATELET COUNT DECREASED [None]
